FAERS Safety Report 10537132 (Version 4)
Quarter: 2014Q4

REPORT INFORMATION
  Report Type: Spontaneous
  Country: JP (occurrence: JP)
  Receive Date: 20141022
  Receipt Date: 20141114
  Transmission Date: 20150529
  Serious: Yes (Life-Threatening, Hospitalization, Other)
  Sender: FDA-Public Use
  Company Number: JP-TAKEDA-2014TJP011399AA

PATIENT
  Age: 57 Year
  Sex: Male
  Weight: 42.2 kg

DRUGS (1)
  1. CERCINE [Suspect]
     Active Substance: DIAZEPAM
     Indication: SEDATIVE THERAPY
     Dosage: 7.5 MG, QD
     Route: 042
     Dates: start: 20140820, end: 20140820

REACTIONS (2)
  - Circulatory collapse [Unknown]
  - Cardio-respiratory arrest [Recovered/Resolved with Sequelae]

NARRATIVE: CASE EVENT DATE: 20140820
